FAERS Safety Report 6673105-2 (Version None)
Quarter: 2010Q2

REPORT INFORMATION
  Report Type: 
  Country: None (occurrence: None)
  Receive Date: 20100408
  Receipt Date: 20100330
  Transmission Date: 20101027
  Serious: Yes (Other)
  Sender: FDA-Public Use
  Company Number: CN-ASTRAZENECA-2010SE15075

PATIENT
  Age: 79 Year
  Sex: Male

DRUGS (5)
  1. MEROPEN [Suspect]
     Indication: PNEUMONIA
     Route: 042
  2. ZOSYN [Suspect]
     Route: 042
     Dates: start: 20100324, end: 20100325
  3. WARFARIN SODIUM [Concomitant]
     Indication: ARTERIOSCLEROSIS OBLITERANS
     Route: 048
  4. BULTAL [Concomitant]
  5. INSULIN [Concomitant]

REACTIONS (1)
  - HAEMORRHAGIC DIATHESIS [None]
